FAERS Safety Report 16100984 (Version 3)
Quarter: 2019Q3

REPORT INFORMATION
  Report Type: Spontaneous
  Country: US (occurrence: US)
  Receive Date: 20190321
  Receipt Date: 20190717
  Transmission Date: 20191004
  Serious: Yes (Disabling)
  Sender: FDA-Public Use
  Company Number: US-SA-2019SA078217

PATIENT
  Age: 65 Year
  Sex: Female
  Weight: 54.42 kg

DRUGS (1)
  1. KEVZARA [Suspect]
     Active Substance: SARILUMAB
     Indication: RHEUMATOID ARTHRITIS
     Dosage: 200 MG, QOW
     Route: 058
     Dates: start: 201812, end: 2019

REACTIONS (6)
  - Drug ineffective [Unknown]
  - Loss of personal independence in daily activities [Unknown]
  - Urinary tract infection [Unknown]
  - Back pain [Unknown]
  - Blood urine present [Unknown]
  - Peripheral swelling [Unknown]

NARRATIVE: CASE EVENT DATE: 2019
